FAERS Safety Report 5084434-0 (Version None)
Quarter: 2006Q3

REPORT INFORMATION
  Report Type: 
  Country: None (occurrence: None)
  Receive Date: 20060821
  Receipt Date: 20060808
  Transmission Date: 20061208
  Serious: Yes (Hospitalization)
  Sender: FDA-Public Use
  Company Number: FR-GLAXOSMITHKLINE-B0433733A

PATIENT
  Age: 86 Year
  Sex: Female

DRUGS (5)
  1. LAMICTAL [Suspect]
     Indication: EPILEPSY
     Dosage: 50MG TWICE PER DAY
     Route: 048
  2. OMEPRAZOLE [Concomitant]
     Route: 065
  3. COVERSYL [Concomitant]
     Indication: HYPERTENSION
     Route: 065
  4. PLAVIX [Concomitant]
     Route: 065
  5. NEXIUM [Concomitant]
     Route: 065

REACTIONS (5)
  - DIZZINESS [None]
  - EYE DISORDER [None]
  - FALL [None]
  - HYPONATRAEMIA [None]
  - NAUSEA [None]
